FAERS Safety Report 21046304 (Version 1)
Quarter: 2022Q3

REPORT INFORMATION
  Report Type: Spontaneous
  Country: ES (occurrence: ES)
  Receive Date: 20220706
  Receipt Date: 20220706
  Transmission Date: 20221027
  Serious: Yes (Hospitalization)
  Sender: FDA-Public Use
  Company Number: ES-AEMPS-1203382

PATIENT
  Age: 82 Year
  Sex: Male

DRUGS (5)
  1. ATORVASTATIN [Suspect]
     Active Substance: ATORVASTATIN
     Indication: Dyslipidaemia
     Dosage: 80 MILLIGRAM, DAILY
     Route: 048
     Dates: start: 20220318, end: 20220329
  2. FUROSEMIDE [Suspect]
     Active Substance: FUROSEMIDE
     Indication: Atrial fibrillation
     Dosage: 40 MILLIGRAM, DAILY
     Route: 048
     Dates: start: 20220320, end: 20220329
  3. IOMEPROL [Suspect]
     Active Substance: IOMEPROL
     Indication: Angiocardiogram
     Dosage: UNK
     Route: 042
     Dates: start: 20220317, end: 20220317
  4. ELIQUIS [Concomitant]
     Active Substance: APIXABAN
     Indication: Atrial fibrillation
     Dosage: 5 MILLIGRAM, DAILY
     Route: 048
     Dates: start: 20220322, end: 20220327
  5. AMIODARONE [Concomitant]
     Active Substance: AMIODARONE
     Indication: Atrial fibrillation
     Dosage: 200 MILLIGRAM, DAILY
     Route: 048
     Dates: start: 20220322

REACTIONS (4)
  - Hepatitis cholestatic [Recovering/Resolving]
  - Urticaria [Recovered/Resolved]
  - Drug reaction with eosinophilia and systemic symptoms [Recovered/Resolved]
  - Eosinophilia [Recovered/Resolved]

NARRATIVE: CASE EVENT DATE: 20220325
